FAERS Safety Report 5066844-0 (Version None)
Quarter: 2006Q3

REPORT INFORMATION
  Report Type: 
  Country: None (occurrence: None)
  Receive Date: 20060726
  Receipt Date: 20060705
  Transmission Date: 20061208
  Serious: Yes (Other)
  Sender: FDA-Public Use
  Company Number: 2006-BP-07787RO

PATIENT
  Age: 8 Year
  Sex: Male

DRUGS (4)
  1. PREDNISONE TAB [Suspect]
     Indication: PROPHYLAXIS AGAINST TRANSPLANT REJECTION
  2. CYCLOSPORINE [Suspect]
     Indication: PROPHYLAXIS AGAINST TRANSPLANT REJECTION
     Dosage: TROUGH LEVEL 250 NG/ML
  3. MYCOPHENOLATE MOFETIL [Suspect]
     Indication: PROPHYLAXIS AGAINST TRANSPLANT REJECTION
  4. TACROLIMUS (TACROLIMUS) [Suspect]
     Indication: PROPHYLAXIS AGAINST TRANSPLANT REJECTION
     Dosage: TROUGH LEVEL 10-15 NG/ML

REACTIONS (6)
  - B-CELL LYMPHOMA [None]
  - DRUG RESISTANCE [None]
  - LYMPHOPROLIFERATIVE DISORDER [None]
  - OESOPHAGEAL DISORDER [None]
  - TONSILLITIS [None]
  - TRANSPLANT REJECTION [None]
